FAERS Safety Report 5104203-2 (Version None)
Quarter: 2006Q3

REPORT INFORMATION
  Report Type: 
  Country: None (occurrence: None)
  Receive Date: 20060911
  Receipt Date: 20060830
  Transmission Date: 20061208
  Serious: Yes (Hospitalization)
  Sender: FDA-Public Use
  Company Number: 2006107271

PATIENT
  Age: 2 Year
  Sex: Female
  Weight: 15 kg

DRUGS (1)
  1. DRAMAMINE [Suspect]
     Dosage: 1/2 TABLETS (25MG) X2 12 HOURS OF INTERVAL, ORAL
     Route: 048
     Dates: start: 20060814, end: 20060814

REACTIONS (2)
  - AGITATION [None]
  - BALANCE DISORDER [None]
